FAERS Safety Report 13254660 (Version 1)
Quarter: 2017Q1

REPORT INFORMATION
  Report Type: Report from Study
  Country: CN (occurrence: CN)
  Receive Date: 20170221
  Receipt Date: 20170221
  Transmission Date: 20170428
  Serious: Yes (Death)
  Sender: FDA-Public Use
  Company Number: CN-ROCHE-1734942

PATIENT
  Sex: Female
  Weight: 55 kg

DRUGS (1)
  1. AVASTIN [Suspect]
     Active Substance: BEVACIZUMAB
     Indication: RECTAL CANCER
     Route: 041
     Dates: start: 20151113

REACTIONS (6)
  - Decreased appetite [Unknown]
  - Ill-defined disorder [Unknown]
  - Multiple organ dysfunction syndrome [Fatal]
  - Oral disorder [Unknown]
  - Stress [Unknown]
  - White blood cell count decreased [Recovering/Resolving]
